FAERS Safety Report 6987776-4 (Version None)
Quarter: 2010Q3

REPORT INFORMATION
  Report Type: 
  Country: None (occurrence: None)
  Receive Date: 20100916
  Receipt Date: 20100908
  Transmission Date: 20110219
  Serious: Yes (Other)
  Sender: FDA-Public Use
  Company Number: PHHY2010US46375

PATIENT
  Sex: Female

DRUGS (8)
  1. ENABLEX [Suspect]
     Dosage: 7.5 MG
     Route: 048
  2. DITROPAN XL [Suspect]
     Dosage: 15 MG
  3. SOTALOL [Concomitant]
     Dosage: 80 MG, BID
  4. TRIAMTERENE AND HYDROCHLOROTHIAZID [Concomitant]
     Dosage: 1 DF, QD
  5. SODIUM [Concomitant]
     Dosage: 3 MG
  6. VITAMIN D [Concomitant]
     Dosage: UNK
  7. CALCIUM [Concomitant]
     Dosage: UNK
  8. WARFARIN SODIUM [Concomitant]
     Dosage: 3 MG

REACTIONS (7)
  - AMNESIA [None]
  - BLOOD PRESSURE DECREASED [None]
  - DEHYDRATION [None]
  - HEART RATE INCREASED [None]
  - HYPERCHLORHYDRIA [None]
  - POLLAKIURIA [None]
  - URINARY INCONTINENCE [None]
